FAERS Safety Report 20771192 (Version 1)
Quarter: 2022Q2

REPORT INFORMATION
  Report Type: Spontaneous
  Country: US (occurrence: US)
  Receive Date: 20220429
  Receipt Date: 20220429
  Transmission Date: 20220720
  Serious: No
  Sender: FDA-Public Use
  Company Number: US-PFIZER INC-202101048042

PATIENT
  Age: 45 Year
  Sex: Female
  Weight: 83.91 kg

DRUGS (4)
  1. XANAX [Suspect]
     Active Substance: ALPRAZOLAM
     Indication: Generalised anxiety disorder
     Dosage: UNK
  2. XANAX [Suspect]
     Active Substance: ALPRAZOLAM
     Indication: Obsessive-compulsive disorder
     Dosage: 0.5 MG, ALTERNATE DAY (EVERY OTHER DAY)
     Dates: end: 20210701
  3. XANAX [Suspect]
     Active Substance: ALPRAZOLAM
     Indication: Panic attack
  4. BUPROPION HYDROCHLORIDE [Concomitant]
     Active Substance: BUPROPION HYDROCHLORIDE
     Indication: Major depression
     Dosage: 150 MG, DAILY

REACTIONS (1)
  - Withdrawal syndrome [Unknown]
